FAERS Safety Report 6030843-2 (Version None)
Quarter: 2009Q1

REPORT INFORMATION
  Report Type: 
  Country: None (occurrence: None)
  Receive Date: 20090107
  Receipt Date: 20081230
  Transmission Date: 20090719
  Serious: Yes (Hospitalization)
  Sender: FDA-Public Use
  Company Number: US-GENENTECH-268876

PATIENT
  Sex: Male
  Weight: 88.45 kg

DRUGS (15)
  1. RITUXAN [Suspect]
     Indication: NON-HODGKIN'S LYMPHOMA
     Dosage: 375 MG/M2, UNK
     Dates: start: 20070426, end: 20080503
  2. VELCADE [Suspect]
     Indication: NON-HODGKIN'S LYMPHOMA
     Dosage: 1.5 MG/M2, UNK
     Route: 040
     Dates: start: 20070511, end: 20070522
  3. CARMUSTINE [Suspect]
     Indication: NON-HODGKIN'S LYMPHOMA
     Dosage: 0.5 MG/KG, UNK
     Route: 042
     Dates: start: 20070516, end: 20070518
  4. ETOPOSIDE [Suspect]
     Indication: NON-HODGKIN'S LYMPHOMA
     Dosage: 197 MG, UNK
     Route: 042
     Dates: start: 20070519, end: 20070522
  5. CYTARABINE [Suspect]
     Indication: NON-HODGKIN'S LYMPHOMA
     Dosage: UNK
     Dates: start: 20070516, end: 20070522
  6. MELPHALAN [Suspect]
     Indication: NON-HODGKIN'S LYMPHOMA
     Dosage: 276 MG, UNK
     Route: 042
     Dates: start: 20070523, end: 20070523
  7. NEURONTIN [Concomitant]
     Indication: DRUG USE FOR UNKNOWN INDICATION
  8. TYLENOL W/ CODEINE [Concomitant]
     Indication: DRUG USE FOR UNKNOWN INDICATION
  9. LISINOPRIL [Concomitant]
     Indication: DRUG USE FOR UNKNOWN INDICATION
  10. METOPROLOL [Concomitant]
     Indication: DRUG USE FOR UNKNOWN INDICATION
  11. SYNTHROID [Concomitant]
     Indication: DRUG USE FOR UNKNOWN INDICATION
  12. NEXIUM [Concomitant]
     Indication: DRUG USE FOR UNKNOWN INDICATION
  13. REGLAN [Concomitant]
     Indication: DRUG USE FOR UNKNOWN INDICATION
  14. BENADRYL [Concomitant]
     Indication: DRUG USE FOR UNKNOWN INDICATION
  15. HYDROCORTISONE [Concomitant]
     Indication: DRUG USE FOR UNKNOWN INDICATION
     Dosage: UNK

REACTIONS (3)
  - ATRIAL FIBRILLATION [None]
  - FEBRILE NEUTROPENIA [None]
  - SEPSIS SYNDROME [None]
